FAERS Safety Report 10092473 (Version 1)
Quarter: 2014Q2

REPORT INFORMATION
  Report Type: Spontaneous
  Country: US (occurrence: US)
  Receive Date: 20140421
  Receipt Date: 20140421
  Transmission Date: 20141212
  Serious: No
  Sender: FDA-Public Use
  Company Number: US-SANOFI-AVENTIS-2013SA040604

PATIENT
  Age: 70 Year
  Sex: Female

DRUGS (2)
  1. ALLEGRA ALLERGY, 12 HR [Suspect]
     Indication: URTICARIA
     Route: 048
     Dates: start: 1992
  2. ALLEGRA ALLERGY, 12 HR [Suspect]
     Indication: SNEEZING
     Route: 048
     Dates: start: 1992

REACTIONS (2)
  - Eructation [Not Recovered/Not Resolved]
  - Therapeutic response decreased [Unknown]
